FAERS Safety Report 8686664 (Version 3)
Quarter: 2012Q4

REPORT INFORMATION
  Report Type: 
  Country: US (occurrence: US)
  Receive Date: 20120727
  Receipt Date: 20120829
  Transmission Date: 20130627
  Serious: Yes (Hospitalization)
  Sender: FDA-Public Use
  Company Number: US-BIOGENIDEC-2012BI027037

PATIENT
  Age: 53 Year
  Sex: Female

DRUGS (1)
  1. TYSABRI [Suspect]
     Indication: MULTIPLE SCLEROSIS
     Route: 042
     Dates: start: 20071004

REACTIONS (7)
  - Staphylococcal infection [Recovered/Resolved]
  - Myositis [Recovered/Resolved]
  - Drug specific antibody present [Not Recovered/Not Resolved]
  - Chest pain [Recovered/Resolved]
  - Limb injury [Recovered/Resolved]
  - Oedema peripheral [Recovered/Resolved]
  - Balance disorder [Not Recovered/Not Resolved]
